FAERS Safety Report 9678927 (Version 1)
Quarter: 2013Q4

REPORT INFORMATION
  Report Type: Spontaneous
  Country: US (occurrence: US)
  Receive Date: 20131108
  Receipt Date: 20131108
  Transmission Date: 20140711
  Serious: Yes (Other)
  Sender: FDA-Public Use
  Company Number: US-PFIZER INC-2013317604

PATIENT
  Age: 61 Year
  Sex: Female
  Weight: 65.76 kg

DRUGS (3)
  1. CELEBREX [Suspect]
     Indication: ARTHRITIS
     Dosage: 200 MG, DAILY
     Dates: end: 201205
  2. LEVOTHYROXINE [Concomitant]
     Indication: THYROID FUNCTION TEST ABNORMAL
     Dosage: 0.05 MG, 1X/DAY
  3. SIMVASTATIN [Concomitant]
     Indication: BLOOD CHOLESTEROL ABNORMAL
     Dosage: 20 MG, 1X/DAY

REACTIONS (1)
  - Road traffic accident [Unknown]
